FAERS Safety Report 9432880 (Version 2)
Quarter: 2013Q3

REPORT INFORMATION
  Report Type: Spontaneous
  Country: IT (occurrence: IT)
  Receive Date: 20130729
  Receipt Date: 20130729
  Transmission Date: 20140515
  Serious: Yes (Hospitalization, Other)
  Sender: FDA-Public Use
  Company Number: SYM-2013-06854

PATIENT
  Age: 65 Year
  Sex: Male

DRUGS (14)
  1. 5 FU [Suspect]
     Indication: COLORECTAL CANCER METASTATIC
     Route: 040
     Dates: start: 20130410, end: 20130410
  2. IRINOTECAN [Suspect]
     Indication: COLORECTAL CANCER METASTATIC
     Route: 042
     Dates: start: 20130410, end: 20130410
  3. LEUCOVORIN [Suspect]
     Indication: COLORECTAL CANCER METASTATIC
     Route: 042
     Dates: start: 20130410, end: 20130410
  4. AFLIBERCEPT [Suspect]
     Indication: COLORECTAL CANCER METASTATIC
     Route: 042
     Dates: start: 20130410, end: 20130410
  5. HEPARIN [Concomitant]
  6. OMEPRAZOLE [Concomitant]
  7. SEROTONIN ANTAGONISTS (SEROTONIN ANTAGONISTS) [Concomitant]
  8. MAGNESIUM HYDROXIDE (MAGNESIUM HYDROXIDE)(MAGNESIUM HYDROXIDE) [Concomitant]
  9. CORTICOSTEROIDS (CORTICOSTEROIDS) [Concomitant]
  10. RANITIDINE (RANITIDINE)(RANITIDINE) [Concomitant]
  11. PROMAZINE (PROMAZINE)(PROMAZINE) [Concomitant]
  12. ACE INHIBITOR NOS (ACE INHIBITORS) [Concomitant]
  13. ANTIBIOTCS (ANTIBIOTICS) [Concomitant]
  14. G-CSF (GRANULOCYTE COLONY STIMULATING FACTOR)(GRANULOCYTE COLONY STIMULATING FACTOR) [Concomitant]

REACTIONS (1)
  - Fatigue [None]
